FAERS Safety Report 10914813 (Version 1)
Quarter: 2015Q1

REPORT INFORMATION
  Report Type: Spontaneous
  Country: US (occurrence: US)
  Receive Date: 20150313
  Receipt Date: 20150313
  Transmission Date: 20150721
  Serious: Yes (Other)
  Sender: FDA-Public Use
  Company Number: US-ASTRAZENECA-2015SE21878

PATIENT
  Age: 53 Year
  Sex: Female
  Weight: 99.8 kg

DRUGS (6)
  1. SYNTHROID [Concomitant]
     Active Substance: LEVOTHYROXINE SODIUM
     Indication: HYPOTHYROIDISM
     Route: 065
  2. TRIAMTERENE HCTZ [Concomitant]
     Active Substance: HYDROCHLOROTHIAZIDE\TRIAMTERENE
     Indication: BLOOD PRESSURE ABNORMAL
     Dosage: DAILY
     Route: 065
     Dates: start: 2013
  3. NEXIUM [Suspect]
     Active Substance: ESOMEPRAZOLE MAGNESIUM
     Indication: GASTROOESOPHAGEAL REFLUX DISEASE
     Route: 048
     Dates: start: 2001, end: 2012
  4. PRILOSEC [Suspect]
     Active Substance: OMEPRAZOLE MAGNESIUM
     Indication: GASTROOESOPHAGEAL REFLUX DISEASE
     Route: 048
     Dates: end: 1998
  5. NEXIUM [Suspect]
     Active Substance: ESOMEPRAZOLE MAGNESIUM
     Indication: HIATUS HERNIA
     Route: 048
     Dates: start: 2001, end: 2012
  6. PRILOSEC [Suspect]
     Active Substance: OMEPRAZOLE MAGNESIUM
     Indication: GASTROOESOPHAGEAL REFLUX DISEASE
     Route: 048
     Dates: start: 1998, end: 2001

REACTIONS (15)
  - Anaemia [Unknown]
  - Body height decreased [Not Recovered/Not Resolved]
  - Hiatus hernia [Recovered/Resolved]
  - Osteoporosis [Not Recovered/Not Resolved]
  - Feeling cold [Unknown]
  - Product use issue [Unknown]
  - Dyspepsia [Recovered/Resolved]
  - Fatigue [Unknown]
  - Gastrooesophageal reflux disease [Recovered/Resolved]
  - Vitamin B12 deficiency [Unknown]
  - Off label use [Recovered/Resolved]
  - Intracranial aneurysm [Not Recovered/Not Resolved]
  - Dizziness [Recovered/Resolved]
  - Magnesium deficiency [Unknown]
  - Vitamin D deficiency [Recovered/Resolved]

NARRATIVE: CASE EVENT DATE: 1998
